FAERS Safety Report 6897863-7 (Version None)
Quarter: 2010Q3

REPORT INFORMATION
  Report Type: 
  Country: None (occurrence: None)
  Receive Date: 20100802
  Receipt Date: 20070726
  Transmission Date: 20110219
  Serious: Yes (Other)
  Sender: FDA-Public Use
  Company Number: US-PFIZER INC-2007062681

PATIENT
  Sex: Female

DRUGS (4)
  1. LYRICA [Suspect]
     Indication: MULTIPLE SCLEROSIS
     Dates: start: 20070701
  2. LYRICA [Suspect]
     Indication: FACIAL PAIN
  3. LYRICA [Suspect]
     Indication: EYE PAIN
  4. LYRICA [Suspect]
     Indication: NEURALGIA

REACTIONS (1)
  - WEIGHT INCREASED [None]
